FAERS Safety Report 6192721-8 (Version None)
Quarter: 2009Q2

REPORT INFORMATION
  Report Type: 
  Country: None (occurrence: None)
  Receive Date: 20090518
  Receipt Date: 20090506
  Transmission Date: 20091009
  Serious: Yes (Hospitalization, Other)
  Sender: FDA-Public Use
  Company Number: US-AMGEN-TCS345968

PATIENT
  Sex: Female

DRUGS (2)
  1. ENBREL [Suspect]
     Indication: RHEUMATOID ARTHRITIS
     Route: 058
     Dates: start: 20000501
  2. METHOTREXATE [Concomitant]
     Route: 048

REACTIONS (5)
  - ARTHRALGIA [None]
  - BENIGN BREAST NEOPLASM [None]
  - EYE DISORDER [None]
  - MECHANICAL COMPLICATION OF IMPLANT [None]
  - UVEITIS [None]
